FAERS Safety Report 10206445 (Version 1)
Quarter: 2014Q2

REPORT INFORMATION
  Report Type: Spontaneous
  Country: US (occurrence: None)
  Receive Date: 20140527
  Receipt Date: 20140527
  Transmission Date: 20141212
  Serious: Yes (Other)
  Sender: FDA-Public Use
  Company Number: None

PATIENT
  Age: 42 Year
  Sex: Male
  Weight: 81.65 kg

DRUGS (4)
  1. CIPRO [Suspect]
     Indication: URETHRITIS
     Dosage: 1 PILL
     Route: 048
     Dates: start: 20140319, end: 20140402
  2. CIPRO [Suspect]
     Indication: PRODUCT USED FOR UNKNOWN INDICATION
     Dosage: 1 PILL
     Route: 048
     Dates: start: 20140319, end: 20140402
  3. CIALIS [Concomitant]
  4. BUPROPION [Concomitant]

REACTIONS (1)
  - Tendon rupture [None]
